FAERS Safety Report 18821325 (Version 4)
Quarter: 2022Q1

REPORT INFORMATION
  Report Type: Other
  Country: CA (occurrence: CA)
  Receive Date: 20210202
  Receipt Date: 20220104
  Transmission Date: 20220424
  Serious: Yes (Other)
  Sender: FDA-Public Use
  Company Number: CA-TOLMAR, INC.-21CA025096

PATIENT
  Age: 83 Year
  Sex: Male

DRUGS (5)
  1. ELIGARD [Suspect]
     Active Substance: LEUPROLIDE ACETATE
     Indication: Prostate cancer
     Dosage: 30 MG, Q 4 MONTH
     Route: 058
     Dates: start: 20200928
  2. ELIGARD [Suspect]
     Active Substance: LEUPROLIDE ACETATE
     Dosage: 30 MG, Q 4 MONTH
     Route: 058
     Dates: start: 20210120
  3. ELIGARD [Suspect]
     Active Substance: LEUPROLIDE ACETATE
     Dosage: 30 MG, Q 4 MONTH
     Route: 058
     Dates: start: 20210512
  4. ELIGARD [Suspect]
     Active Substance: LEUPROLIDE ACETATE
     Dosage: 30 MG, Q 4 MONTH
     Route: 058
     Dates: start: 20210903
  5. ELIGARD [Suspect]
     Active Substance: LEUPROLIDE ACETATE
     Dosage: 30 MG, Q 4 MONTH
     Route: 058
     Dates: start: 20211222

REACTIONS (10)
  - Erectile dysfunction [Unknown]
  - Increased appetite [Unknown]
  - Dyspnoea [Unknown]
  - Dysuria [Unknown]
  - Weight increased [Unknown]
  - Insomnia [Unknown]
  - Testicular atrophy [Unknown]
  - Hot flush [Unknown]
  - Fatigue [Not Recovered/Not Resolved]
  - Libido decreased [Unknown]

NARRATIVE: CASE EVENT DATE: 20200928
